FAERS Safety Report 4317283-9 (Version None)
Quarter: 2004Q1

REPORT INFORMATION
  Report Type: 
  Country: None (occurrence: None)
  Receive Date: 20040304
  Receipt Date: 20040223
  Transmission Date: 20041129
  Serious: Yes (Death)
  Sender: FDA-Public Use
  Company Number: DEWYE263621AUG03

PATIENT
  Sex: Female

DRUGS (2)
  1. REFACTO [Suspect]
     Indication: ACQUIRED HAEMOPHILIA
     Dosage: 30.000 IU PER DAY INTRAVENOUS
     Route: 042
     Dates: start: 20030601
  2. RITUXIMAB (RITUXIMAB) [Concomitant]

REACTIONS (4)
  - CARDIAC FAILURE [None]
  - CIRCULATORY COLLAPSE [None]
  - SEPSIS [None]
  - SYSTEMIC INFLAMMATORY RESPONSE SYNDROME [None]
